FAERS Safety Report 8485310-3 (Version None)
Quarter: 2012Q2

REPORT INFORMATION
  Report Type: 
  Country: None (occurrence: None)
  Receive Date: 20120627
  Receipt Date: 20120627
  Transmission Date: 20120825
  Serious: Yes (Hospitalization)
  Sender: FDA-Public Use
  Company Number: None

PATIENT
  Age: 80 Year
  Sex: Male
  Weight: 57.3 kg

DRUGS (3)
  1. PREDNISONE [Suspect]
     Indication: INFLAMMATION
     Dosage: 5 MG EVERY DAY PO
     Route: 048
     Dates: start: 20081105, end: 20120619
  2. NAPROXEN [Suspect]
     Indication: INFLAMMATION
     Dosage: 500 MG BID PO
     Route: 048
     Dates: start: 20081117, end: 20120619
  3. NAPROXEN [Suspect]
     Indication: PAIN
     Dosage: 500 MG BID PO
     Route: 048
     Dates: start: 20081117, end: 20120619

REACTIONS (2)
  - ANAEMIA [None]
  - GASTRIC HAEMORRHAGE [None]
